FAERS Safety Report 8849854 (Version 1)
Quarter: 2012Q4

REPORT INFORMATION
  Report Type: 
  Country: US (occurrence: US)
  Receive Date: 20121019
  Receipt Date: 20121019
  Transmission Date: 20130627
  Serious: Yes (Hospitalization, Other)
  Sender: FDA-Public Use
  Company Number: US-ELI_LILLY_AND_COMPANY-US201210002283

PATIENT
  Age: 59 Year
  Sex: Female

DRUGS (9)
  1. BYETTA [Suspect]
     Dosage: 10 ug, bid
     Route: 058
  2. DITROPAN                                /USA/ [Concomitant]
     Dosage: 5 mg, qid
     Route: 048
  3. SYNTHROID [Concomitant]
     Dosage: 100 ug, qd
  4. NOVOLOG [Concomitant]
     Dosage: 25 u, tid
     Route: 058
  5. LANTUS [Concomitant]
     Dosage: 25 u, qd
  6. ASPIRIN                                 /USA/ [Concomitant]
     Dosage: 81 mg, qd
     Route: 048
  7. TRICOR [Concomitant]
     Dosage: 145 mg, qd
  8. ZESTORETIC [Concomitant]
  9. ALDACTONE                               /USA/ [Concomitant]

REACTIONS (5)
  - Pancreatitis [Recovered/Resolved]
  - Renal failure acute [Recovered/Resolved]
  - Obstructive uropathy [Recovered/Resolved]
  - Hydronephrosis [Recovered/Resolved]
  - Renal impairment [Unknown]
